FAERS Safety Report 5361083-8 (Version None)
Quarter: 2007Q2

REPORT INFORMATION
  Report Type: 
  Country: None (occurrence: None)
  Receive Date: 20070618
  Receipt Date: 20070606
  Transmission Date: 20071010
  Serious: Yes (Death)
  Sender: FDA-Public Use
  Company Number: PH-PFIZER INC-2007048634

PATIENT
  Age: 84 Year
  Sex: Female

DRUGS (1)
  1. UNASYN [Suspect]
     Dosage: DAILY DOSE:750MG

REACTIONS (1)
  - SHOCK [None]
